FAERS Safety Report 11697887 (Version 3)
Quarter: 2015Q4

REPORT INFORMATION
  Report Type: Spontaneous
  Country: JP (occurrence: JP)
  Receive Date: 20151104
  Receipt Date: 20151216
  Transmission Date: 20160304
  Serious: Yes (Hospitalization, Other)
  Sender: FDA-Public Use
  Company Number: JP-GLAXOSMITHKLINE-JP2015JPN129484

PATIENT
  Age: 52 Year
  Sex: Female

DRUGS (1)
  1. LAMICTAL [Suspect]
     Active Substance: LAMOTRIGINE
     Indication: BIPOLAR DISORDER
     Dosage: 25 MG, QD
     Route: 048
     Dates: start: 20150818, end: 20150826

REACTIONS (21)
  - Erythema of eyelid [Unknown]
  - Rash [Unknown]
  - Skin necrosis [Unknown]
  - Eyelid erosion [Unknown]
  - Meibomian gland dysfunction [Not Recovered/Not Resolved]
  - Eye discharge [Unknown]
  - Oral mucosa erosion [Unknown]
  - Pyrexia [Unknown]
  - Ocular hyperaemia [Unknown]
  - Blister [Unknown]
  - Madarosis [Not Recovered/Not Resolved]
  - Mouth swelling [Unknown]
  - Oropharyngeal pain [Unknown]
  - Vulval disorder [Unknown]
  - Erythema [Unknown]
  - Epidermal necrosis [Unknown]
  - Scab [Unknown]
  - Stevens-Johnson syndrome [Recovered/Resolved with Sequelae]
  - Drug eruption [Unknown]
  - Lip erosion [Unknown]
  - Skin erosion [Unknown]

NARRATIVE: CASE EVENT DATE: 20150826
